FAERS Safety Report 5100562-5 (Version None)
Quarter: 2006Q3

REPORT INFORMATION
  Report Type: 
  Country: None (occurrence: None)
  Receive Date: 20060909
  Receipt Date: 20060829
  Transmission Date: 20061208
  Serious: Yes (Other)
  Sender: FDA-Public Use
  Company Number: BE-ABBOTT-06P-013-0343164-00

PATIENT
  Sex: Male

DRUGS (2)
  1. RITONAVIR [Suspect]
     Indication: HIV INFECTION
     Route: 065
  2. SAQUINAVIR [Suspect]
     Indication: HIV INFECTION
     Route: 065

REACTIONS (1)
  - PORTAL VEIN THROMBOSIS [None]
